FAERS Safety Report 8284906-1 (Version None)
Quarter: 2012Q2

REPORT INFORMATION
  Report Type: 
  Country: None (occurrence: None)
  Receive Date: 20120413
  Receipt Date: 20111114
  Transmission Date: 20120825
  Serious: No
  Sender: FDA-Public Use
  Company Number: US-ASTRAZENECA-2011SE69492

PATIENT
  Age: 66 Year
  Sex: Female

DRUGS (2)
  1. RANITIDINE [Concomitant]
  2. NEXIUM [Suspect]
     Route: 048

REACTIONS (7)
  - INFECTION [None]
  - MALAISE [None]
  - DRUG INEFFECTIVE [None]
  - DYSPHAGIA [None]
  - GASTROINTESTINAL EROSION [None]
  - WEIGHT DECREASED [None]
  - HAEMORRHAGE [None]
